FAERS Safety Report 12875602 (Version 2)
Quarter: 2025Q4

REPORT INFORMATION
  Report Type: Spontaneous
  Country: US (occurrence: US)
  Receive Date: 20161024
  Receipt Date: 20251017
  Transmission Date: 20260118
  Serious: Yes (Hospitalization, Other)
  Sender: ACCORD
  Company Number: US-ACCORD-044981

PATIENT
  Age: 47 Year
  Sex: Female

DRUGS (4)
  1. MYCOPHENOLATE MOFETIL [Suspect]
     Active Substance: MYCOPHENOLATE MOFETIL
     Indication: Systemic lupus erythematosus
     Dosage: INITIALLY RECEIVED UNKNOWN DOSE, THEN INCREASED TO 3 G DAILY
     Dates: start: 201507
  2. CYCLOPHOSPHAMIDE [Suspect]
     Active Substance: CYCLOPHOSPHAMIDE
     Indication: Systemic lupus erythematosus
  3. PREDNISONE [Suspect]
     Active Substance: PREDNISONE
     Indication: Systemic lupus erythematosus
     Dosage: HIGH DOSE STEROID
  4. BELIMUMAB [Suspect]
     Active Substance: BELIMUMAB
     Indication: Systemic lupus erythematosus
     Dates: start: 2012

REACTIONS (6)
  - Cytomegalovirus infection [Recovering/Resolving]
  - Tuberculosis [Unknown]
  - Aspergillus infection [Unknown]
  - Depression [Unknown]
  - Gait disturbance [Unknown]
  - Off label use [Unknown]
